FAERS Safety Report 15348764 (Version 1)
Quarter: 2018Q3

REPORT INFORMATION
  Report Type: Spontaneous
  Country: US (occurrence: US)
  Receive Date: 20180829
  Receipt Date: 20180829
  Transmission Date: 20181010
  Serious: Yes (Death)
  Sender: FDA-Public Use
  Company Number: None

PATIENT
  Age: 94 Year
  Sex: Female

DRUGS (7)
  1. TASIGNA [Suspect]
     Active Substance: NILOTINIB
     Route: 048
     Dates: start: 20180624, end: 20180819
  2. MECLIZINE 25MG [Concomitant]
     Dates: start: 20180705, end: 20180819
  3. CLOPIDROGEL 75MG [Concomitant]
     Dates: start: 20180705, end: 20180819
  4. LEVOTHYROXINE 75MG [Concomitant]
     Active Substance: LEVOTHYROXINE
     Dates: start: 20180726, end: 20180819
  5. TIMOLOL MAL 0.5 DROP [Concomitant]
     Dates: start: 20180502, end: 20180819
  6. POT CHLORIDE 10% [Concomitant]
     Dates: start: 20180705, end: 20180819
  7. METOPROLOL TAR 25MG [Concomitant]
     Active Substance: METOPROLOL TARTRATE
     Dates: start: 20180705, end: 20180819

REACTIONS (1)
  - Death [None]

NARRATIVE: CASE EVENT DATE: 20180819
